FAERS Safety Report 12213766 (Version 1)
Quarter: 2016Q1

REPORT INFORMATION
  Report Type: Spontaneous
  Country: US (occurrence: None)
  Receive Date: 20160325
  Receipt Date: 20160325
  Transmission Date: 20160526
  Serious: Yes (Death)
  Sender: FDA-Public Use
  Company Number: None

PATIENT
  Age: 94 Year
  Sex: Female

DRUGS (7)
  1. ASPIRIN. [Concomitant]
     Active Substance: ASPIRIN
  2. LISINOPRIL. [Concomitant]
     Active Substance: LISINOPRIL
  3. VICODIN [Concomitant]
     Active Substance: ACETAMINOPHEN\HYDROCODONE BITARTRATE
  4. TRACLEER [Suspect]
     Active Substance: BOSENTAN
     Indication: COR PULMONALE CHRONIC
     Route: 048
     Dates: start: 201411, end: 201603
  5. OMEPRAZOLE. [Concomitant]
     Active Substance: OMEPRAZOLE
  6. GABAPENTIN. [Concomitant]
     Active Substance: GABAPENTIN
  7. AMLODIPINE [Concomitant]
     Active Substance: AMLODIPINE BESYLATE

REACTIONS (6)
  - Fall [None]
  - Peripheral ischaemia [None]
  - Peripheral artery occlusion [None]
  - Hip fracture [None]
  - Arteriosclerosis [None]
  - Peripheral artery stenosis [None]

NARRATIVE: CASE EVENT DATE: 20160309
